FAERS Safety Report 17173857 (Version 1)
Quarter: 2019Q4

REPORT INFORMATION
  Report Type: Spontaneous
  Country: US (occurrence: US)
  Receive Date: 20191219
  Receipt Date: 20191219
  Transmission Date: 20200122
  Serious: No
  Sender: FDA-Public Use
  Company Number: US-PFIZER INC-2019543915

PATIENT
  Age: 66 Year
  Sex: Female

DRUGS (1)
  1. INLYTA [Suspect]
     Active Substance: AXITINIB
     Indication: RENAL CANCER
     Dosage: 1 MG, UNK

REACTIONS (8)
  - Constipation [Unknown]
  - Neoplasm progression [Unknown]
  - Dyspnoea exertional [Unknown]
  - Fatigue [Unknown]
  - Lymphadenopathy [Unknown]
  - Pain [Unknown]
  - Decreased appetite [Unknown]
  - Palpitations [Unknown]
